FAERS Safety Report 7180718-0 (Version None)
Quarter: 2010Q4

REPORT INFORMATION
  Report Type: 
  Country: None (occurrence: None)
  Receive Date: 20101221
  Receipt Date: 20101214
  Transmission Date: 20110411
  Serious: Yes (Other)
  Sender: FDA-Public Use
  Company Number: ZA-ABBOTT-10P-143-0691126-00

PATIENT
  Age: 3 Year
  Sex: Male

DRUGS (1)
  1. ULTANE [Suspect]
     Indication: INDUCTION OF ANAESTHESIA

REACTIONS (1)
  - TONIC CLONIC MOVEMENTS [None]
